FAERS Safety Report 8516507-1 (Version None)
Quarter: 2012Q3

REPORT INFORMATION
  Report Type: 
  Country: None (occurrence: None)
  Receive Date: 20120718
  Receipt Date: 20120701
  Transmission Date: 20120928
  Serious: Yes (Other)
  Sender: FDA-Public Use
  Company Number: TR-009507513-1207TUR000890

PATIENT

DRUGS (3)
  1. CLOMIPHENE CITRATE [Suspect]
     Indication: OVULATION INDUCTION
     Dosage: 50-150 MG
  2. PUREGON [Suspect]
     Indication: OVULATION INDUCTION
     Dosage: 75 IU - 675 IU
  3. PREGNYL [Suspect]
     Indication: OVULATION INDUCTION
     Dosage: 10000 IU

REACTIONS (3)
  - ABORTION [None]
  - DRUG INEFFECTIVE [None]
  - MATERNAL EXPOSURE DURING PREGNANCY [None]
